FAERS Safety Report 7820530-X (Version None)
Quarter: 2011Q4

REPORT INFORMATION
  Report Type: 
  Country: None (occurrence: None)
  Receive Date: 20111018
  Receipt Date: 20111005
  Transmission Date: 20120403
  Serious: Yes (Hospitalization, Other)
  Sender: FDA-Public Use
  Company Number: PHHY2011FR88677

PATIENT
  Age: 66 Year
  Sex: Female

DRUGS (11)
  1. KETOPROFEN [Interacting]
     Dosage: UNK
     Route: 042
     Dates: start: 20101104, end: 20101106
  2. ESOMEPRAZOLE SODIUM [Concomitant]
     Dosage: UNK
     Dates: start: 20101104, end: 20101106
  3. TRIMETAZIDINE [Concomitant]
     Dosage: UNK
  4. DESLORATADINE [Concomitant]
     Dosage: UNK
  5. AZOPT [Concomitant]
     Dosage: UNK UKN
  6. LEVOTHYROXINE SODIUM [Concomitant]
     Dosage: 175 UG, DAILY FOR 6 DAYS PER WEEK
  7. DEXTROPROPOXYPHENE [Concomitant]
     Dosage: UNK
  8. ASPIRIN [Concomitant]
     Dosage: 75 MG, DAILY
  9. QUESTRAN [Concomitant]
     Dosage: UNK
  10. VALSARTAN  AND HYDROCHLOROTHIAZIDE [Suspect]
     Dosage: UNK
     Dates: start: 20100601, end: 20101101
  11. IBUPROFEN [Interacting]
     Dosage: UNK
     Route: 042
     Dates: start: 20101103, end: 20101103

REACTIONS (17)
  - BLOOD POTASSIUM INCREASED [None]
  - RESPIRATORY DISORDER [None]
  - DYSPNOEA [None]
  - CHOLECYSTITIS ACUTE [None]
  - RENAL FAILURE ACUTE [None]
  - ATELECTASIS [None]
  - PULMONARY OEDEMA [None]
  - INTESTINAL ISCHAEMIA [None]
  - SEPSIS [None]
  - BLOOD CREATININE INCREASED [None]
  - GENERAL PHYSICAL HEALTH DETERIORATION [None]
  - OLIGURIA [None]
  - HYPOVOLAEMIA [None]
  - HAEMODYNAMIC TEST ABNORMAL [None]
  - SEPTIC SHOCK [None]
  - MUSCLE HAEMORRHAGE [None]
  - ANURIA [None]
